FAERS Safety Report 7348916-0 (Version None)
Quarter: 2011Q1

REPORT INFORMATION
  Report Type: 
  Country: None (occurrence: None)
  Receive Date: 20110303
  Receipt Date: 20110225
  Transmission Date: 20110831
  Serious: Yes (Congenital Anomaly, Other)
  Sender: FDA-Public Use
  Company Number: GB-ACCORD-008243

PATIENT
  Sex: Female
  Weight: 2 kg

DRUGS (2)
  1. TOPIRAMATE [Suspect]
     Dosage: 250 MG, TRANSPLACENTAL
     Route: 064
  2. VALPROIC ACID [Suspect]
     Dosage: 500 MG, TRANSPLACENTAL
     Route: 064

REACTIONS (5)
  - DYSPNOEA [None]
  - CLEFT PALATE [None]
  - FOOT DEFORMITY [None]
  - MATERNAL DRUGS AFFECTING FOETUS [None]
  - DRUG INTERACTION [None]
